FAERS Safety Report 15948540 (Version 1)
Quarter: 2019Q1

REPORT INFORMATION
  Report Type: Spontaneous
  Country: DE (occurrence: DE)
  Receive Date: 20190212
  Receipt Date: 20190212
  Transmission Date: 20190417
  Serious: Yes (Congenital Anomaly)
  Sender: FDA-Public Use
  Company Number: DE-ACCORD-106933

PATIENT
  Age: 0 Year
  Sex: Male
  Weight: 3.01 kg

DRUGS (6)
  1. AMOXICILLIN HEUMANN [Concomitant]
     Indication: SINUSITIS
     Dosage: 2250 MG/D / DURING 1ST AND 3RD TRIMESTER FOR 7 DAYS EACH
     Route: 064
  2. AMITRIPTYLINE [Suspect]
     Active Substance: AMITRIPTYLINE
     Indication: SLEEP DISORDER
     Route: 064
  3. PARACETAMOL [Concomitant]
     Active Substance: ACETAMINOPHEN
     Indication: PYREXIA
     Dosage: 500 MG/D / DURING 1ST AND 3RD TRIMESTER FOR 7 DAYS EACH
     Route: 064
  4. CITALOPRAM [Suspect]
     Active Substance: CITALOPRAM HYDROBROMIDE
     Indication: DEPRESSION
     Route: 064
  5. FOLIO (NEM) [Concomitant]
     Indication: PROPHYLAXIS OF NEURAL TUBE DEFECT
     Route: 064
  6. HYDROXYPROGESTERONE [Concomitant]
     Active Substance: HYDROXYPROGESTERONE
     Indication: PROPHYLAXIS OF ABORTION
     Route: 064

REACTIONS (2)
  - Foetal exposure during pregnancy [Unknown]
  - Cataract congenital [Not Recovered/Not Resolved]
